FAERS Safety Report 9189264 (Version 2)
Quarter: 2013Q2

REPORT INFORMATION
  Report Type: Spontaneous
  Country: AT (occurrence: None)
  Receive Date: 20120702
  Receipt Date: 20130225
  Transmission Date: 20140414
  Serious: Yes (Hospitalization)
  Sender: FDA-Public Use
  Company Number: 2011-459

PATIENT
  Age: 68 Year
  Sex: Female

DRUGS (18)
  1. PRIALT [Suspect]
     Indication: PAIN
     Route: 037
     Dates: start: 20090527, end: 20090715
  2. SUFENTA (SUFENTANIL CITRATE) INJECTION [Suspect]
     Indication: PAIN
     Route: 037
     Dates: start: 20090526, end: 20090714
  3. LORNOXICAM (LORNOXICAM) [Concomitant]
  4. AMITRIPTYLIN (AMITRIPTYLINE HYDROCHLORIDE) [Concomitant]
  5. OXYCONTIN (OXYCODONE HYDROCHLORIDE) [Concomitant]
  6. XEFO (LORNOXICAM) [Concomitant]
  7. ACTIQ (FENTANYL CITRATE) [Concomitant]
  8. PANTOLOC (PANTOPRAZOLE SODIUM SESQUIHYDRATE) [Concomitant]
  9. MIRTABENE (MIRTAZAPINE) [Concomitant]
  10. HALCION (TRIAZOLAM) [Concomitant]
  11. RESTEX (BENSERAZIDE HYDROCHLORIDE, LEVODOPA) [Concomitant]
  12. TELFAST (TRAZODONE HYDROCHLORIDE) [Concomitant]
  13. TRITTICO (TRAZODONE) [Concomitant]
  14. SIRDALUD (TIZANDINE HYDROCHLORIDE) [Concomitant]
  15. LISINOSTAD (LISINOPRIL) [Concomitant]
  16. THROMBO AS (ACETYLSALICYLIC ACID) [Concomitant]
  17. VOLTAREN OPHTA (DICLOFENAC SODIUM) [Concomitant]
  18. DEXAGENTA (DEXAMETHASONE) [Concomitant]

REACTIONS (1)
  - Tremor [None]
